FAERS Safety Report 9596773 (Version 2)
Quarter: 2013Q4

REPORT INFORMATION
  Report Type: Report from Study
  Country: DE (occurrence: DE)
  Receive Date: 20131004
  Receipt Date: 20131011
  Transmission Date: 20140711
  Serious: Yes (Hospitalization)
  Sender: FDA-Public Use
  Company Number: DE-VERTEX PHARMACEUTICALS INC-2013-010183

PATIENT
  Age: 66 Year
  Sex: Male
  Weight: 76 kg

DRUGS (33)
  1. BLINDED PRE-TREATMENT [Suspect]
     Indication: HEPATITIS C
     Dosage: 750 MG, TID
     Route: 048
     Dates: start: 20120510, end: 20120730
  2. BLINDED TMC435 [Suspect]
     Indication: HEPATITIS C
     Dosage: 750 MG, TID
     Route: 048
     Dates: start: 20120510, end: 20120730
  3. BLINDED VX-950 (TELAPREVIR) [Suspect]
     Indication: HEPATITIS C
     Dosage: 750 MG, TID
     Route: 048
     Dates: start: 20120510, end: 20120730
  4. RIBAVIRIN [Suspect]
     Indication: HEPATITIS C
     Dosage: 600 MG, BID
     Route: 048
     Dates: start: 20120510, end: 20120729
  5. RIBAVIRIN [Suspect]
     Dosage: 400 MG, BID
     Route: 048
     Dates: start: 20120730, end: 20120808
  6. PEGASYS [Suspect]
     Indication: HEPATITIS C
     Route: 058
     Dates: start: 20120510, end: 20120803
  7. VIANI [Concomitant]
     Indication: ASTHMA
     Dosage: 1 DF, BID
     Route: 055
  8. CITALOPRAM [Concomitant]
     Indication: DEPRESSION
     Dosage: 20 MG, QD
     Route: 048
     Dates: end: 20120504
  9. CITALOPRAM [Concomitant]
     Indication: FRUSTRATION
     Route: 048
     Dates: start: 20120704, end: 20120706
  10. PARACETAMOL [Concomitant]
     Indication: INFLUENZA LIKE ILLNESS
     Dosage: DOSAGE FORM: UNSPECIFIED
     Route: 048
     Dates: start: 20120510, end: 20120820
  11. DOLO POSTERINE [Concomitant]
     Indication: ANORECTAL DISORDER
     Dosage: DOSAGE FORM: OINTMENT
     Route: 061
     Dates: start: 20120704, end: 20121004
  12. DOLO POSTERINE [Concomitant]
     Indication: HAEMORRHOIDS
  13. CETIRIZINE [Concomitant]
     Indication: DERMATITIS ATOPIC
     Dosage: DOSAGE FORM: TABLET
     Route: 048
     Dates: start: 20120704, end: 20120725
  14. CETIRIZINE [Concomitant]
     Indication: PRURITUS
     Dosage: DOSAGE FORM: TABLET
     Route: 048
     Dates: start: 201208, end: 201208
  15. ATARAX [Concomitant]
     Indication: DERMATITIS ATOPIC
     Dosage: 1 DF, PRN
     Route: 048
     Dates: start: 20120704, end: 20120725
  16. ATARAX [Concomitant]
     Indication: PRURITUS
     Dosage: 25 MG, QD
     Route: 048
     Dates: start: 20120823, end: 20120829
  17. ATARAX [Concomitant]
     Dosage: 1 DF, QD
     Route: 048
     Dates: start: 20130410
  18. DERMOXIN [Concomitant]
     Indication: PRURITUS
     Dosage: DOSAGE FORM: OINTMENT
     Route: 061
     Dates: start: 20120704, end: 20120829
  19. DERMOXIN [Concomitant]
     Indication: RASH
  20. POLYSPECTRAN N [Concomitant]
     Indication: ECZEMA
     Dosage: 1 DF, TID
     Route: 061
     Dates: start: 20120730, end: 20120829
  21. COLECALCIFEROL [Concomitant]
     Indication: DERMATITIS ATOPIC
     Dosage: DOSAGE FORM: TABLET
     Route: 048
     Dates: start: 20120808
  22. GENTAMICIN [Concomitant]
     Indication: ECZEMA
     Dosage: DOSAGE FORM: DROPS
     Route: 047
     Dates: start: 20120823, end: 20120829
  23. DERMATOP [Concomitant]
     Indication: DERMATITIS ATOPIC
     Dosage: DOSAGE FORM: OINTMENT
     Route: 061
     Dates: start: 20120808, end: 20120822
  24. DERMATOP [Concomitant]
     Dosage: DOSAGE FORM: OINTMENT
     Route: 061
     Dates: start: 20120829, end: 20120926
  25. DERMATOP [Concomitant]
     Dosage: DOSAGE FORM: OINTMENT
     Route: 061
     Dates: start: 20120927, end: 201211
  26. ECURAL [Concomitant]
     Indication: DERMATITIS ATOPIC
     Dosage: DOSAGE FORM: SOLUTION
     Route: 061
     Dates: start: 20120725, end: 20120730
  27. ECURAL [Concomitant]
     Indication: RASH
     Dosage: DOSAGE FORM: SOLUTION
     Route: 061
     Dates: start: 20120823, end: 20120926
  28. ECURAL [Concomitant]
     Dosage: DOSAGE FORM: SOLUTION
     Route: 061
     Dates: start: 20120927, end: 201211
  29. TRICLOSAN [Concomitant]
     Indication: DERMATITIS ATOPIC
     Route: 061
     Dates: start: 20120808, end: 20120822
  30. SILVER NITRATE [Concomitant]
     Indication: DERMATITIS ATOPIC
     Route: 061
     Dates: start: 201208, end: 201208
  31. TELFAST [Concomitant]
     Indication: DERMATITIS ATOPIC
     Dosage: 180 MG, QD
     Route: 048
     Dates: start: 20120823, end: 20120829
  32. UNACID [Concomitant]
     Indication: SUPERINFECTION
     Dosage: 1.5 G, TID
     Route: 042
     Dates: start: 20120808, end: 20120817
  33. ATOSIL [Concomitant]
     Indication: PRURITUS
     Dosage: DOSAGE FORM: TABLET
     Route: 048
     Dates: start: 20120725, end: 20120730

REACTIONS (1)
  - Hepatocellular carcinoma [Not Recovered/Not Resolved]
